FAERS Safety Report 4994448-4 (Version None)
Quarter: 2006Q2

REPORT INFORMATION
  Report Type: 
  Country: None (occurrence: None)
  Receive Date: 20060503
  Receipt Date: 20060420
  Transmission Date: 20061013
  Serious: Yes (Hospitalization)
  Sender: FDA-Public Use
  Company Number: 2006054764

PATIENT
  Age: 60 Year
  Sex: Male

DRUGS (1)
  1. SUTENT [Suspect]
     Indication: RENAL CELL CARCINOMA STAGE UNSPECIFIED
     Dosage: 50 MG (50 MG, QD-INTERVAL:  4 WEEKS ON WITH 2 WEEKS O), ORAL
     Route: 048
     Dates: start: 20060403, end: 20060419

REACTIONS (2)
  - CHEST PAIN [None]
  - HYPERTENSION [None]
